FAERS Safety Report 12554398 (Version 1)
Quarter: 2016Q3

REPORT INFORMATION
  Report Type: Spontaneous
  Country: AR (occurrence: AR)
  Receive Date: 20160713
  Receipt Date: 20160713
  Transmission Date: 20161109
  Serious: Yes (Other)
  Sender: FDA-Public Use
  Company Number: AR-GLAXOSMITHKLINE-AR2016GSK099438

PATIENT
  Age: 70 Year
  Sex: Female

DRUGS (8)
  1. LOSACOR [Concomitant]
     Active Substance: LOSARTAN POTASSIUM
  2. PANTOPRAZOLE [Concomitant]
     Active Substance: PANTOPRAZOLE SODIUM
  3. ALPAX [Concomitant]
  4. DICLOFENAC SODIUM. [Suspect]
     Active Substance: DICLOFENAC SODIUM
     Indication: PRODUCT USED FOR UNKNOWN INDICATION
  5. ASPIRINA PREVENT [Concomitant]
     Active Substance: ASPIRIN
  6. VASOTENAL [Concomitant]
  7. SIMVASTATIN. [Concomitant]
     Active Substance: SIMVASTATIN
  8. FERUMOXSIL [Concomitant]
     Active Substance: FERUMOXSIL

REACTIONS (8)
  - Retinal vascular thrombosis [Unknown]
  - Blood pressure increased [Unknown]
  - Bone disorder [Unknown]
  - Visual acuity reduced [Unknown]
  - Visual impairment [Unknown]
  - Pain [Unknown]
  - Spinal cord disorder [Unknown]
  - Nervousness [Unknown]
